FAERS Safety Report 6150907-2 (Version None)
Quarter: 2009Q2

REPORT INFORMATION
  Report Type: 
  Country: None (occurrence: None)
  Receive Date: 20090408
  Receipt Date: 20090331
  Transmission Date: 20091009
  Serious: Yes (Hospitalization)
  Sender: FDA-Public Use
  Company Number: 1000005559

PATIENT
  Age: 45 Year
  Sex: Female
  Weight: 68.3 kg

DRUGS (9)
  1. MILNACIPRAN (OPEN-LABEL) (MILNACIPRAN HYDROCHLORIDE) [Suspect]
     Indication: FIBROMYALGIA
     Dosage: 50 MG, ORAL
     Route: 048
     Dates: start: 20090318, end: 20090324
  2. PREGABALIN [Suspect]
     Indication: FIBROMYALGIA
     Dosage: 450 MG, ORAL
     Route: 048
     Dates: start: 20090218, end: 20090324
  3. TYLENOL SINUS [Concomitant]
  4. SALONPAS (POULTICE OR PATCH) [Concomitant]
  5. TYLENOL [Concomitant]
  6. IBUPROFEN [Concomitant]
  7. KLONOPIN [Concomitant]
  8. ETODOLAC [Concomitant]
  9. NORTRIPTYLINE HCL [Concomitant]

REACTIONS (7)
  - ABDOMINAL DISTENSION [None]
  - ABDOMINAL PAIN UPPER [None]
  - EPIGASTRIC DISCOMFORT [None]
  - LIVER FUNCTION TEST ABNORMAL [None]
  - OEDEMA PERIPHERAL [None]
  - SYNCOPE [None]
  - VOMITING [None]
